FAERS Safety Report 7888255-2 (Version None)
Quarter: 2011Q4

REPORT INFORMATION
  Report Type: 
  Country: None (occurrence: None)
  Receive Date: 20111103
  Receipt Date: 20111025
  Transmission Date: 20120403
  Serious: Yes (Other)
  Sender: FDA-Public Use
  Company Number: US-MYLANLABS-2011S1020395

PATIENT
  Age: 17 Year
  Sex: Female
  Weight: 68.04 kg

DRUGS (2)
  1. AMNESTEEM [Suspect]
     Indication: ACNE
     Route: 048
     Dates: start: 20110407, end: 20110510
  2. SPRINTEC [Concomitant]
     Dates: start: 20101201

REACTIONS (3)
  - SUICIDAL IDEATION [None]
  - DEPRESSION [None]
  - MAJOR DEPRESSION [None]
